FAERS Safety Report 20214177 (Version 1)
Quarter: 2021Q4

REPORT INFORMATION
  Report Type: Spontaneous
  Country: US (occurrence: None)
  Receive Date: 20211221
  Receipt Date: 20211221
  Transmission Date: 20220303
  Serious: No
  Sender: FDA-Public Use
  Company Number: None

PATIENT
  Age: 66 Year
  Sex: Male

DRUGS (1)
  1. DEFINITY [Suspect]
     Active Substance: PERFLUTREN
     Dates: start: 20211118, end: 20211118

REACTIONS (2)
  - Back pain [None]
  - Infusion related reaction [None]

NARRATIVE: CASE EVENT DATE: 20211118
